FAERS Safety Report 25280778 (Version 1)
Quarter: 2025Q2

REPORT INFORMATION
  Report Type: Report from Study
  Country: US (occurrence: US)
  Receive Date: 20250508
  Receipt Date: 20250508
  Transmission Date: 20250717
  Serious: Yes (Other)
  Sender: UCB
  Company Number: US-UCBSA-2024054973

PATIENT
  Age: 6 Year
  Sex: Male
  Weight: 19.6 kg

DRUGS (11)
  1. FINTEPLA [Suspect]
     Active Substance: FENFLURAMINE
     Indication: Severe myoclonic epilepsy of infancy
     Dosage: 2 MILLILITER, 2X/DAY (BID)
     Route: 048
     Dates: start: 20230501
  2. CLONAZEPAM [Concomitant]
     Active Substance: CLONAZEPAM
     Indication: Seizure
     Dosage: 0.25 MILLIGRAM, 2X/DAY (BID)
  3. CLONIDINE [Concomitant]
     Active Substance: CLONIDINE
     Indication: Product used for unknown indication
     Route: 048
  4. DIAZEPAM [Concomitant]
     Active Substance: DIAZEPAM
     Indication: Seizure
     Dosage: 10 MILLIGRAM, ONCE DAILY (QD)
     Route: 054
  5. FYCOMPA [Concomitant]
     Active Substance: PERAMPANEL
     Indication: Product used for unknown indication
     Dosage: 2 MILLILITER, ONCE DAILY (QD)
     Route: 048
  6. ACETAMINOPHEN [Concomitant]
     Active Substance: ACETAMINOPHEN
     Indication: Product used for unknown indication
     Route: 048
  7. AMOXICILLIN [Concomitant]
     Active Substance: AMOXICILLIN
     Indication: Product used for unknown indication
     Dosage: 9.6 MILLILITER, 2X/DAY (BID)
  8. IBUPROFEN [Concomitant]
     Active Substance: IBUPROFEN
     Indication: Product used for unknown indication
  9. POLYETHYLENE GLYCOLS [Concomitant]
     Active Substance: POLYETHYLENE GLYCOLS
     Indication: Product used for unknown indication
     Route: 048
  10. STIRIPENTOL [Concomitant]
     Active Substance: STIRIPENTOL
     Indication: Product used for unknown indication
     Dosage: 260 MILLIGRAM, ONCE DAILY (QD), MORNING
     Route: 048
  11. STIRIPENTOL [Concomitant]
     Active Substance: STIRIPENTOL
     Dosage: 200 MILLIGRAM, ONCE DAILY (QD), EVENING

REACTIONS (10)
  - Seizure [Recovered/Resolved]
  - Heart rate increased [Unknown]
  - Epistaxis [Unknown]
  - Fall [Unknown]
  - Thyroid mass [Unknown]
  - Oxygen saturation decreased [Unknown]
  - Initial insomnia [Recovered/Resolved]
  - Psychomotor hyperactivity [Unknown]
  - Gait disturbance [Unknown]
  - Electrocardiogram abnormal [Not Recovered/Not Resolved]

NARRATIVE: CASE EVENT DATE: 20250430
